FAERS Safety Report 7721695-0 (Version None)
Quarter: 2011Q3

REPORT INFORMATION
  Report Type: 
  Country: None (occurrence: None)
  Receive Date: 20110831
  Receipt Date: 20110823
  Transmission Date: 20111222
  Serious: Yes (Other)
  Sender: FDA-Public Use
  Company Number: JP-VIIV HEALTHCARE LIMITED-B0736853A

PATIENT
  Sex: Male

DRUGS (6)
  1. EPZICOM [Concomitant]
     Indication: ACQUIRED IMMUNODEFICIENCY SYNDROME
     Route: 048
     Dates: start: 20110715, end: 20110727
  2. ZIAGEN [Suspect]
     Indication: ACQUIRED IMMUNODEFICIENCY SYNDROME
     Dosage: 600MG PER DAY
     Route: 048
     Dates: start: 20110728, end: 20110801
  3. EPIVIR [Suspect]
     Indication: ACQUIRED IMMUNODEFICIENCY SYNDROME
     Dosage: 300MG PER DAY
     Route: 048
     Dates: start: 20110728, end: 20110801
  4. ISENTRESS [Concomitant]
     Indication: ACQUIRED IMMUNODEFICIENCY SYNDROME
     Dosage: 800MG PER DAY
     Route: 048
     Dates: start: 20110623, end: 20110801
  5. PENTAMIDINE ISETHIONATE [Suspect]
     Indication: PNEUMOCYSTIS JIROVECI PNEUMONIA
     Dosage: 180MG PER DAY
     Dates: start: 20110706, end: 20110801
  6. HARNAL D [Concomitant]
     Indication: DYSURIA
     Dosage: .2MG PER DAY
     Route: 048
     Dates: start: 20110726, end: 20110801

REACTIONS (3)
  - ABDOMINAL PAIN UPPER [None]
  - PANCREATITIS ACUTE [None]
  - ASCITES [None]
